FAERS Safety Report 8072012-0 (Version None)
Quarter: 2012Q1

REPORT INFORMATION
  Report Type: 
  Country: None (occurrence: None)
  Receive Date: 20120124
  Receipt Date: 20120124
  Transmission Date: 20120608
  Serious: Yes (Death)
  Sender: FDA-Public Use
  Company Number: None

PATIENT
  Age: 39 Year
  Sex: Male
  Weight: 55.7 kg

DRUGS (1)
  1. RESTASIS [Suspect]
     Indication: PROPHYLAXIS AGAINST GRAFT VERSUS HOST DISEASE
     Dosage: 1 DROP EACH EYE TWICE DAILY SUBCONJUNCTIVAL
     Route: 057
     Dates: start: 20100114

REACTIONS (3)
  - STEM CELL TRANSPLANT [None]
  - PNEUMONIA [None]
  - GRAFT VERSUS HOST DISEASE IN LUNG [None]
